FAERS Safety Report 9294139 (Version 1)
Quarter: 2013Q2

REPORT INFORMATION
  Report Type: Spontaneous
  Country: GB (occurrence: GB)
  Receive Date: 20130517
  Receipt Date: 20130517
  Transmission Date: 20140414
  Serious: Yes (Other)
  Sender: FDA-Public Use
  Company Number: GB-AMGEN-GBRSP2013034531

PATIENT
  Age: 75 Year
  Sex: Female

DRUGS (1)
  1. ENBREL [Suspect]
     Indication: PRODUCT USED FOR UNKNOWN INDICATION
     Dosage: 25 MG, MONTHLY

REACTIONS (6)
  - Swollen tongue [Unknown]
  - Back pain [Unknown]
  - Blister [Unknown]
  - Rash erythematous [Unknown]
  - Chest pain [Unknown]
  - Lower respiratory tract infection [Unknown]
